FAERS Safety Report 11216019 (Version 2)
Quarter: 2015Q3

REPORT INFORMATION
  Report Type: Report from Study
  Country: US (occurrence: US)
  Receive Date: 20150624
  Receipt Date: 20150803
  Transmission Date: 20151125
  Serious: Yes (Other)
  Sender: FDA-Public Use
  Company Number: US-SA-2014SA086005

PATIENT
  Age: 40 Year
  Sex: Female

DRUGS (4)
  1. PRILOSEC [Concomitant]
     Active Substance: OMEPRAZOLE MAGNESIUM
  2. AUBAGIO [Suspect]
     Active Substance: TERIFLUNOMIDE
     Indication: MULTIPLE SCLEROSIS
     Route: 048
     Dates: start: 20140707
  3. BACLOFEN. [Concomitant]
     Active Substance: BACLOFEN
     Dosage: FORM: PUMP
  4. AUBAGIO [Suspect]
     Active Substance: TERIFLUNOMIDE
     Indication: MULTIPLE SCLEROSIS
     Route: 048
     Dates: start: 20140622, end: 20140706

REACTIONS (10)
  - Hypoaesthesia [Unknown]
  - Abdominal pain upper [Unknown]
  - Dysgraphia [Unknown]
  - Muscle spasms [Unknown]
  - Urinary tract infection [Unknown]
  - Flatulence [Unknown]
  - Unevaluable event [Unknown]
  - Dyspepsia [Unknown]
  - Headache [Unknown]
  - Malaise [Unknown]

NARRATIVE: CASE EVENT DATE: 20140622
